FAERS Safety Report 8499443-9 (Version None)
Quarter: 2012Q3

REPORT INFORMATION
  Report Type: 
  Country: None (occurrence: None)
  Receive Date: 20120710
  Receipt Date: 20120705
  Transmission Date: 20120928
  Serious: Yes (Hospitalization, Other)
  Sender: FDA-Public Use
  Company Number: CA-ABBOTT-12P-028-0950039-00

PATIENT
  Sex: Female
  Weight: 24.97 kg

DRUGS (1)
  1. HUMIRA [Suspect]
     Indication: CROHN'S DISEASE
     Route: 058
     Dates: start: 20090414, end: 20120401

REACTIONS (5)
  - MALABSORPTION [None]
  - PANCREATIC DISORDER [None]
  - PANCREATIC NEOPLASM [None]
  - MALNUTRITION [None]
  - SPLEEN DISORDER [None]
